FAERS Safety Report 16186145 (Version 1)
Quarter: 2019Q2

REPORT INFORMATION
  Report Type: Spontaneous
  Country: ES (occurrence: ES)
  Receive Date: 20190411
  Receipt Date: 20190411
  Transmission Date: 20190711
  Serious: Yes (Other)
  Sender: FDA-Public Use
  Company Number: ES-ROCHE-2299077

PATIENT
  Age: 41 Year
  Sex: Female

DRUGS (3)
  1. VALIUM [Suspect]
     Active Substance: DIAZEPAM
     Indication: PRODUCT USED FOR UNKNOWN INDICATION
     Route: 065
  2. ZYPREXA [Suspect]
     Active Substance: OLANZAPINE
     Indication: PRODUCT USED FOR UNKNOWN INDICATION
     Route: 065
  3. DEPO-PROVERA [Suspect]
     Active Substance: MEDROXYPROGESTERONE ACETATE
     Indication: PRODUCT USED FOR UNKNOWN INDICATION
     Dosage: UNK, CYCLIC (EVERY 3 MONTHS)
     Route: 065
     Dates: start: 201412

REACTIONS (9)
  - Depressed mood [Unknown]
  - Fatigue [Unknown]
  - Apathy [Unknown]
  - Suicidal ideation [Unknown]
  - Somnolence [Unknown]
  - Amenorrhoea [Unknown]
  - Sedation [Unknown]
  - Decreased interest [Unknown]
  - Negative thoughts [Unknown]
